FAERS Safety Report 4659167-2 (Version None)
Quarter: 2005Q2

REPORT INFORMATION
  Report Type: 
  Country: None (occurrence: None)
  Receive Date: 20050511
  Receipt Date: 20050420
  Transmission Date: 20051028
  Serious: Yes (Death)
  Sender: FDA-Public Use
  Company Number: DE-AMGEN-UK128063

PATIENT
  Sex: Male
  Weight: 91.5 kg

DRUGS (20)
  1. MIMPARA [Suspect]
     Indication: HYPERPARATHYROIDISM SECONDARY
     Route: 048
     Dates: start: 20050412, end: 20050416
  2. INSULIN [Concomitant]
     Route: 065
  3. BISOPROLOL FUMARATE [Concomitant]
     Route: 065
  4. PLAVIX [Concomitant]
     Route: 065
  5. GABAPENTIN [Concomitant]
     Route: 065
  6. RENAGEL [Concomitant]
     Route: 065
  7. ONE-ALPHA [Concomitant]
     Route: 065
  8. EFEROX [Concomitant]
     Route: 065
  9. TRAMADOL HCL [Concomitant]
     Route: 065
  10. PHOSPHONORM [Concomitant]
     Route: 065
  11. PASPERTIN [Concomitant]
     Route: 065
  12. OMEPRAZOLE [Concomitant]
     Route: 065
  13. LACTULOSE [Concomitant]
     Route: 065
  14. AMOXICILLIN AND CLAVULANATE POTASSIUM [Concomitant]
     Route: 065
  15. SODIUM POLYSTYRENE SULFONATE [Concomitant]
     Route: 065
  16. NITROGLYCERIN [Concomitant]
     Route: 065
  17. PENTAERITHRITYL TETRANITRATE [Concomitant]
     Route: 065
  18. EZETIMIBE [Concomitant]
     Route: 065
  19. LEVOCARNITINE [Concomitant]
     Route: 065
  20. LISINOPRIL [Concomitant]
     Route: 065

REACTIONS (2)
  - SUDDEN CARDIAC DEATH [None]
  - VENTRICULAR DYSFUNCTION [None]
